FAERS Safety Report 9238206 (Version 1)
Quarter: 2013Q2

REPORT INFORMATION
  Report Type: Spontaneous
  Country: US (occurrence: None)
  Receive Date: 20130415
  Receipt Date: 20130415
  Transmission Date: 20140414
  Serious: Yes (Other)
  Sender: FDA-Public Use
  Company Number: 2013-009

PATIENT
  Age: 6 Year
  Sex: 0

DRUGS (3)
  1. LORTUSS DM [Suspect]
     Indication: ALLERGIC RESPIRATORY DISEASE
     Route: 048
     Dates: start: 20130317, end: 20130319
  2. AUGMENTIN [Concomitant]
  3. ORAPRED [Concomitant]

REACTIONS (1)
  - Mydriasis [None]
